FAERS Safety Report 24566375 (Version 3)
Quarter: 2025Q2

REPORT INFORMATION
  Report Type: Spontaneous
  Country: US (occurrence: US)
  Receive Date: 20241030
  Receipt Date: 20250502
  Transmission Date: 20250717
  Serious: No
  Sender: ALEXION PHARMACEUTICALS
  Company Number: US-AstraZeneca-2024A204503

PATIENT
  Age: 85 Year
  Weight: 67.6 kg

DRUGS (4)
  1. BREZTRI [Suspect]
     Active Substance: BUDESONIDE\FORMOTEROL\GLYCOPYRROLATE
     Indication: Chronic obstructive pulmonary disease
  2. MONTELUKAST [Concomitant]
     Active Substance: MONTELUKAST
  3. TRELEGY ELLIPTA [Concomitant]
     Active Substance: FLUTICASONE FUROATE\UMECLIDINIUM BROMIDE\VILANTEROL TRIFENATATE
  4. ALBUTEROL [Concomitant]
     Active Substance: ALBUTEROL

REACTIONS (18)
  - Tremor [Unknown]
  - Oxygen saturation [Unknown]
  - Rhinitis [Unknown]
  - Pulmonary mass [Unknown]
  - Emphysema [Unknown]
  - Device use issue [Unknown]
  - Wrong technique in device usage process [Unknown]
  - Incorrect dose administered by device [Unknown]
  - Product administration interrupted [Unknown]
  - Scleral discolouration [Unknown]
  - Gastrointestinal sounds abnormal [Unknown]
  - Nasal septum disorder [Unknown]
  - Nasal turbinate abnormality [Unknown]
  - Eye disorder [Unknown]
  - Nasal congestion [Unknown]
  - Cough [Unknown]
  - Dyspnoea [Unknown]
  - Wheezing [Unknown]
